FAERS Safety Report 7373915-2 (Version None)
Quarter: 2011Q1

REPORT INFORMATION
  Report Type: 
  Country: None (occurrence: None)
  Receive Date: 20110325
  Receipt Date: 20110322
  Transmission Date: 20110831
  Serious: No
  Sender: FDA-Public Use
  Company Number: US-PFIZER INC-2011064001

PATIENT
  Sex: Female

DRUGS (1)
  1. ADVIL COLD AND SINUS [Suspect]
     Dosage: UNK
     Route: 048

REACTIONS (3)
  - DYSPNOEA [None]
  - NASAL OEDEMA [None]
  - NASAL DISORDER [None]
